FAERS Safety Report 9565730 (Version 1)
Quarter: 2013Q3

REPORT INFORMATION
  Report Type: Report from Study
  Country: US (occurrence: US)
  Receive Date: 20130930
  Receipt Date: 20130930
  Transmission Date: 20140515
  Serious: No
  Sender: FDA-Public Use
  Company Number: US-B.I. PHARMACEUTICALS,INC./RIDGEFIELD-2013-BI-29220BP

PATIENT
  Age: 56 Year
  Sex: Female

DRUGS (2)
  1. GILOTRIF [Suspect]
     Indication: LUNG CARCINOMA CELL TYPE UNSPECIFIED STAGE I
     Dosage: 40 MG
     Route: 048
     Dates: start: 20130801
  2. GILOTRIF [Suspect]
     Dosage: 30 MG
     Route: 048

REACTIONS (6)
  - Diarrhoea [Unknown]
  - Pain [Unknown]
  - Decreased appetite [Unknown]
  - Weight decreased [Unknown]
  - Constipation [Unknown]
  - Cough [Unknown]
